FAERS Safety Report 19364200 (Version 1)
Quarter: 2021Q2

REPORT INFORMATION
  Report Type: Spontaneous
  Country: IT (occurrence: IT)
  Receive Date: 20210602
  Receipt Date: 20210602
  Transmission Date: 20210717
  Serious: Yes (Hospitalization, Other)
  Sender: FDA-Public Use
  Company Number: IT-MYLANLABS-2021M1031484

PATIENT
  Age: 35 Year
  Sex: Male

DRUGS (1)
  1. ALPRAZOLAM. [Suspect]
     Active Substance: ALPRAZOLAM
     Indication: PRODUCT USED FOR UNKNOWN INDICATION
     Dosage: 140 GTT DROPS, TOTAL
     Route: 048
     Dates: start: 20210313, end: 20210313

REACTIONS (5)
  - Somnolence [Not Recovered/Not Resolved]
  - Drug abuse [Unknown]
  - Intentional overdose [Not Recovered/Not Resolved]
  - Intentional product misuse [Unknown]
  - Sopor [Not Recovered/Not Resolved]

NARRATIVE: CASE EVENT DATE: 20210313
